FAERS Safety Report 4791532-5 (Version None)
Quarter: 2005Q4

REPORT INFORMATION
  Report Type: 
  Country: None (occurrence: None)
  Receive Date: 20051007
  Receipt Date: 20050119
  Transmission Date: 20060501
  Serious: No
  Sender: FDA-Public Use
  Company Number: US-BRISTOL-MYERS SQUIBB COMPANY-12829768

PATIENT
  Age: 73 Year
  Sex: Female
  Weight: 77 kg

DRUGS (4)
  1. AVAPRO [Suspect]
     Indication: HYPERTENSION
     Dosage: START 1/2/05;STOP FOR FEW DAYS;RESTART 1/12/05.
     Route: 048
     Dates: start: 20050102
  2. ATENOLOL [Concomitant]
  3. CLARINEX [Concomitant]
  4. ZETIA [Concomitant]

REACTIONS (1)
  - DYSGEUSIA [None]
